FAERS Safety Report 7729976-1 (Version None)
Quarter: 2011Q3

REPORT INFORMATION
  Report Type: 
  Country: None (occurrence: None)
  Receive Date: 20110906
  Receipt Date: 20110824
  Transmission Date: 20111222
  Serious: Yes (Life-Threatening, Hospitalization, Other)
  Sender: FDA-Public Use
  Company Number: CZ-ROCHE-798984

PATIENT
  Age: 43 Year
  Sex: Female

DRUGS (5)
  1. NEUROL [Concomitant]
  2. AZITHROMYCIN [Concomitant]
  3. LETROX [Concomitant]
  4. XELODA [Suspect]
     Indication: PANCREATIC CARCINOMA
     Route: 048
     Dates: start: 20110708, end: 20110721
  5. VERAL [Concomitant]

REACTIONS (7)
  - ABSCESS INTESTINAL [None]
  - CHEST DISCOMFORT [None]
  - VOMITING [None]
  - ABDOMINAL PAIN [None]
  - ACUTE RESPIRATORY DISTRESS SYNDROME [None]
  - SEPSIS [None]
  - DIARRHOEA [None]
